FAERS Safety Report 7916520-9 (Version None)
Quarter: 2011Q4

REPORT INFORMATION
  Report Type: 
  Country: None (occurrence: None)
  Receive Date: 20111116
  Receipt Date: 20111107
  Transmission Date: 20120403
  Serious: Yes (Other)
  Sender: FDA-Public Use
  Company Number: DE-JNJFOC-20111102968

PATIENT
  Age: 45 Year
  Sex: Female

DRUGS (11)
  1. RISPERDAL [Suspect]
     Route: 048
     Dates: start: 20110120, end: 20110125
  2. LAMOTRIGINE [Concomitant]
     Indication: PRODUCT USED FOR UNKNOWN INDICATION
     Route: 048
     Dates: start: 20110120, end: 20110125
  3. SEROQUEL XR [Suspect]
     Indication: PRODUCT USED FOR UNKNOWN INDICATION
     Route: 048
  4. AKINETON [Concomitant]
     Indication: PRODUCT USED FOR UNKNOWN INDICATION
     Route: 048
  5. PERPHENAZINE [Suspect]
     Route: 048
     Dates: start: 20110210
  6. PERPHENAZINE [Suspect]
     Route: 048
     Dates: start: 20110202, end: 20110207
  7. RISPERDAL [Suspect]
     Indication: PRODUCT USED FOR UNKNOWN INDICATION
     Route: 048
     Dates: start: 20110126, end: 20110204
  8. PERPHENAZINE [Suspect]
     Route: 048
     Dates: end: 20110201
  9. PERPHENAZINE [Suspect]
     Indication: PRODUCT USED FOR UNKNOWN INDICATION
     Route: 048
     Dates: start: 20110208, end: 20110209
  10. LAMOTRIGINE [Concomitant]
     Route: 048
     Dates: start: 20110126, end: 20110204
  11. BUPROPION HYDROCHLORIDE [Concomitant]
     Indication: PRODUCT USED FOR UNKNOWN INDICATION
     Route: 048

REACTIONS (1)
  - PLEUROTHOTONUS [None]
